FAERS Safety Report 7280846-5 (Version None)
Quarter: 2011Q1

REPORT INFORMATION
  Report Type: 
  Country: None (occurrence: None)
  Receive Date: 20110208
  Receipt Date: 20110125
  Transmission Date: 20110831
  Serious: No
  Sender: FDA-Public Use
  Company Number: US-PFIZER INC-2010131634

PATIENT
  Age: 63 Year
  Sex: Female
  Weight: 95.24 kg

DRUGS (3)
  1. AZITHROMYCIN [Suspect]
     Dosage: UNK
  2. MS CONTIN [Suspect]
     Dosage: 800 MG DAILY
  3. MS CONTIN [Suspect]
     Indication: PAIN
     Dosage: 800 MG DAILY

REACTIONS (9)
  - DIZZINESS [None]
  - GAIT DISTURBANCE [None]
  - HYPOTENSION [None]
  - SOMNOLENCE [None]
  - GASTROOESOPHAGEAL REFLUX DISEASE [None]
  - NAUSEA [None]
  - ASTHENIA [None]
  - OEDEMA PERIPHERAL [None]
  - PRODUCT QUALITY ISSUE [None]
